FAERS Safety Report 21554797 (Version 2)
Quarter: 2022Q4

REPORT INFORMATION
  Report Type: Report from Study
  Country: US (occurrence: US)
  Receive Date: 20221104
  Receipt Date: 20221226
  Transmission Date: 20230113
  Serious: No
  Sender: FDA-Public Use
  Company Number: US-002147023-NVSC2022US247845

PATIENT
  Age: 47 Year
  Sex: Female
  Weight: 95.25 kg

DRUGS (1)
  1. COSENTYX [Suspect]
     Active Substance: SECUKINUMAB
     Indication: Ankylosing spondylitis
     Dosage: 150 MG, QW
     Route: 058
     Dates: start: 20221010

REACTIONS (3)
  - Arthralgia [Unknown]
  - Back pain [Unknown]
  - Product dose omission issue [Unknown]

NARRATIVE: CASE EVENT DATE: 20221031
